FAERS Safety Report 18032553 (Version 1)
Quarter: 2020Q3

REPORT INFORMATION
  Report Type: Other
  Country: GB (occurrence: GB)
  Receive Date: 20200716
  Receipt Date: 20200716
  Transmission Date: 20201103
  Serious: Yes (Other)
  Sender: FDA-Public Use
  Company Number: GB-ROCHE-2640052

PATIENT
  Sex: Female

DRUGS (4)
  1. TRASTUZUMAB. [Suspect]
     Active Substance: TRASTUZUMAB
     Indication: BREAST CANCER METASTATIC
     Dosage: ON DAY 1, OF 21 DAY CYCLES UNTIL DISEASE PROGRESSION OR UNACCEPTABLE TOXICITY.
     Route: 065
  2. CAPECITABINE. [Suspect]
     Active Substance: CAPECITABINE
     Dosage: ON DAYS 1 ? 14 OF 21 DAY CYCLES UNTIL DISEASE PROGRESSION OR UNACCEPTABLE TOXICITY.
     Route: 065
  3. CAPECITABINE. [Suspect]
     Active Substance: CAPECITABINE
     Indication: BREAST CANCER METASTATIC
     Dosage: ON DAY 1?14, OF 21 DAY CYCLES UNTIL DISEASE PROGRESSION OR UNACCEPTABLE TOXICITY.
     Route: 065
  4. LAPATINIB [Suspect]
     Active Substance: LAPATINIB
     Indication: BREAST CANCER METASTATIC
     Dosage: ON DAYS 1?14
     Route: 065

REACTIONS (29)
  - Neutropenia [Unknown]
  - Fatigue [Unknown]
  - Rash [Unknown]
  - White blood cell count abnormal [Unknown]
  - Diarrhoea [Unknown]
  - Constipation [Unknown]
  - Alopecia [Unknown]
  - Oedema [Unknown]
  - Abdominal pain [Unknown]
  - Neutrophil count abnormal [Unknown]
  - Dyspepsia [Unknown]
  - Platelet disorder [Unknown]
  - Stomatitis [Unknown]
  - Dry skin [Unknown]
  - Haemoglobin abnormal [Unknown]
  - Blood bilirubin abnormal [Unknown]
  - Fluid retention [Unknown]
  - Muscular weakness [Unknown]
  - Nausea [Unknown]
  - Palmar-plantar erythrodysaesthesia syndrome [Unknown]
  - Headache [Unknown]
  - Aspartate aminotransferase abnormal [Unknown]
  - Blood creatinine abnormal [Unknown]
  - Vomiting [Unknown]
  - Decreased appetite [Unknown]
  - Pain [Unknown]
  - Alanine aminotransferase abnormal [Unknown]
  - Coordination abnormal [Unknown]
  - Vision blurred [Unknown]
